FAERS Safety Report 10266840 (Version 1)
Quarter: 2014Q2

REPORT INFORMATION
  Report Type: Spontaneous
  Country: US (occurrence: None)
  Receive Date: 20140625
  Receipt Date: 20140625
  Transmission Date: 20141212
  Serious: Yes (Other)
  Sender: FDA-Public Use
  Company Number: None

PATIENT
  Age: 61 Year
  Sex: Female
  Weight: 48.99 kg

DRUGS (2)
  1. GNC ULTRA-MEGA WOMEN^S VITAMINS [Suspect]
     Indication: ASTHENIA
     Dosage: 2 PER DAY. I ONLY TOOK ONE. DAILY ORAL
     Route: 048
     Dates: start: 201311, end: 201404
  2. LIQUID VITAMIN D3 + CALCIUM (ONE TSP- DAILY) [Concomitant]

REACTIONS (2)
  - Abdominal pain upper [None]
  - Diarrhoea [None]
